FAERS Safety Report 17716417 (Version 1)
Quarter: 2020Q2

REPORT INFORMATION
  Report Type: Spontaneous
  Country: US (occurrence: US)
  Receive Date: 20200428
  Receipt Date: 20200428
  Transmission Date: 20200714
  Serious: Yes (Other)
  Sender: FDA-Public Use
  Company Number: US-AMGEN-USASP2020066072

PATIENT
  Age: 60 Year
  Sex: Male

DRUGS (6)
  1. VINCRISTINE [Concomitant]
     Active Substance: VINCRISTINE
  2. HIGH-DOSE IMMUNOGLOBULIN [Concomitant]
     Active Substance: HUMAN IMMUNOGLOBULIN G
  3. RITUXIMAB. [Concomitant]
     Active Substance: RITUXIMAB
  4. ELTROMBOPAG [Concomitant]
     Active Substance: ELTROMBOPAG
     Dosage: 100 TO 150 MG DAILY FOR MORE THAN 24 WEEKS
  5. DANAZOL. [Concomitant]
     Active Substance: DANAZOL
     Dosage: 400 MILLIGRAM, QD
  6. ROMIPLOSTIM [Suspect]
     Active Substance: ROMIPLOSTIM
     Indication: THROMBOCYTOPENIA
     Dosage: 10 MICROGRAM/KILOGRAM, QWK
     Route: 065

REACTIONS (6)
  - Retinal haemorrhage [Recovered/Resolved]
  - Epistaxis [Recovering/Resolving]
  - Cystitis haemorrhagic [Recovered/Resolved]
  - Therapeutic product effect incomplete [Unknown]
  - Chronic graft versus host disease in intestine [Recovering/Resolving]
  - Neuropathy peripheral [Recovering/Resolving]
